FAERS Safety Report 8988958 (Version 1)
Quarter: 2012Q4

REPORT INFORMATION
  Report Type: 
  Country: MX (occurrence: MX)
  Receive Date: 20121228
  Receipt Date: 20121228
  Transmission Date: 20130627
  Serious: Yes (Other)
  Sender: FDA-Public Use
  Company Number: PHHY2012MX120189

PATIENT
  Age: 86 Year
  Sex: Male

DRUGS (5)
  1. EXFORGE [Suspect]
     Indication: HYPERTENSION
     Dosage: 1 DF (160/5mg) daily
  2. EXELON PATCH [Suspect]
     Indication: MEMORY IMPAIRMENT
     Dosage: 4.6 mg, one patch daily
  3. OMEGA 3 [Suspect]
     Dosage: 300 mg, daily
     Dates: start: 201103
  4. AKATINOL MEMANTINA [Concomitant]
     Indication: NERVOUS SYSTEM DISORDER
     Dosage: 20 mg, daily
     Dates: start: 2011
  5. GENTEAL                            /03186201/ [Concomitant]
     Dosage: 1 DF, UNK
     Dates: start: 201103

REACTIONS (2)
  - Cerebral arteriosclerosis [Not Recovered/Not Resolved]
  - Cardiac disorder [Not Recovered/Not Resolved]
